FAERS Safety Report 18718274 (Version 1)
Quarter: 2021Q1

REPORT INFORMATION
  Report Type: Spontaneous
  Country: US (occurrence: US)
  Receive Date: 20210108
  Receipt Date: 20210108
  Transmission Date: 20210419
  Serious: Yes (Other)
  Sender: FDA-Public Use
  Company Number: US-AMNEAL PHARMACEUTICALS-2020-AMRX-02291

PATIENT
  Age: 53 Year
  Sex: Female
  Weight: 59 kg

DRUGS (4)
  1. ACTIVELLA [Suspect]
     Active Substance: ESTRADIOL\NORETHINDRONE ACETATE
     Indication: DRUG LEVEL
     Dosage: 1 TABLETS, ONCE
     Route: 048
     Dates: start: 20190131, end: 20190131
  2. ELAGOLIX [Suspect]
     Active Substance: ELAGOLIX
     Dosage: 300 MILLIGRAM, ONCE (CAPSULE)
     Route: 048
     Dates: start: 20190205, end: 20190205
  3. ACTIVELLA [Suspect]
     Active Substance: ESTRADIOL\NORETHINDRONE ACETATE
     Dosage: 1 CAPSULES, ONCE
     Route: 048
     Dates: start: 20190205, end: 20190205
  4. ELAGOLIX [Suspect]
     Active Substance: ELAGOLIX
     Indication: DRUG LEVEL
     Dosage: 300 MILLIGRAM, ONCE (TABLET)
     Route: 048
     Dates: start: 20190131, end: 20190131

REACTIONS (1)
  - Breast cancer [Not Recovered/Not Resolved]

NARRATIVE: CASE EVENT DATE: 20190419
